FAERS Safety Report 5043157-4 (Version None)
Quarter: 2006Q2

REPORT INFORMATION
  Report Type: 
  Country: None (occurrence: None)
  Receive Date: 20060628
  Receipt Date: 20060620
  Transmission Date: 20061013
  Serious: Yes (Death)
  Sender: FDA-Public Use
  Company Number: E2020-00173-SPO-FR

PATIENT
  Age: 87 Year
  Sex: Female
  Weight: 32 kg

DRUGS (7)
  1. ARICEPT [Suspect]
     Dosage: 1 DOSAGE FORMS, 1 IN 1 D, ORAL
     Route: 048
     Dates: end: 20060120
  2. ARICEPT [Suspect]
     Dosage: 1 DOSAGE FORMS, 1 IN 1 D, ORAL
     Route: 048
     Dates: start: 20060123, end: 20060123
  3. FUROSEMIDE [Concomitant]
  4. DIGOXIN [Concomitant]
  5. ESOMEPRAZOLE (INEXIUM) [Concomitant]
  6. RAMIPRIL [Concomitant]
  7. DL-LYSINE ACETYLSALICYLATE (ACETYLSALICYLATE LYSINE) [Concomitant]

REACTIONS (1)
  - ACUTE PULMONARY OEDEMA [None]
